FAERS Safety Report 6254061-8 (Version None)
Quarter: 2009Q3

REPORT INFORMATION
  Report Type: 
  Country: None (occurrence: None)
  Receive Date: 20090702
  Receipt Date: 20090623
  Transmission Date: 20100115
  Serious: Yes (Death)
  Sender: FDA-Public Use
  Company Number: US-JNJFOC-20090400219

PATIENT
  Sex: Female
  Weight: 80 kg

DRUGS (6)
  1. FENTANYL TRANSDERMAL SYSTEM [Suspect]
     Indication: PAIN
     Route: 062
  2. DURAGESIC-100 [Suspect]
     Indication: PAIN
     Route: 062
  3. ZANAFLEX [Concomitant]
     Indication: MUSCLE SPASMS
  4. NEURONTIN [Concomitant]
  5. LORAZEPAM [Concomitant]
  6. TEMAZEPAM [Concomitant]

REACTIONS (1)
  - OVERDOSE [None]
